FAERS Safety Report 9269789 (Version 2)
Quarter: 2013Q2

REPORT INFORMATION
  Report Type: Report from Study
  Country: US (occurrence: US)
  Receive Date: 20130503
  Receipt Date: 20130508
  Transmission Date: 20140414
  Serious: Yes (Life-Threatening, Hospitalization)
  Sender: FDA-Public Use
  Company Number: US-ROCHE-1075799

PATIENT
  Age: 59 Year
  Sex: Female
  Weight: 60.9 kg

DRUGS (11)
  1. PACLITAXEL [Suspect]
     Indication: BREAST CANCER METASTATIC
     Dosage: DATE OF LAST DOSE 10 MG/M2 ON 05/JUL/2012. MOST RECENT DOSE PRIOR TO DYSPHASIA: 10MG/M2 ON 22/MAY/20
     Route: 042
     Dates: start: 20120228
  2. PARACETAMOL [Concomitant]
     Indication: ANALGESIC THERAPY
     Route: 065
  3. DOMPERIDONE [Concomitant]
     Indication: NAUSEA
     Route: 065
     Dates: start: 20120306
  4. OMEPRAZOLE [Concomitant]
     Indication: DYSPEPSIA
     Route: 065
     Dates: start: 20120410
  5. DEXAMETHASONE [Concomitant]
     Indication: METASTASES TO CENTRAL NERVOUS SYSTEM
     Route: 065
     Dates: start: 20120605
  6. DEXAMETHASONE [Concomitant]
     Indication: PREMEDICATION
     Route: 065
     Dates: start: 20120424, end: 20120605
  7. CHLORPHENAMINE [Concomitant]
     Indication: PREMEDICATION
     Route: 065
     Dates: start: 20120424, end: 20120605
  8. RANITIDINE [Concomitant]
     Indication: PREMEDICATION
     Route: 065
     Dates: start: 20120424, end: 20120605
  9. PROCHLORPERAZINE [Concomitant]
     Indication: NAUSEA
     Route: 065
     Dates: start: 20120621
  10. PLACEBO [Suspect]
     Indication: BREAST CANCER METASTATIC
     Route: 042
     Dates: start: 20120228
  11. BEVACIZUMAB [Suspect]
     Indication: BREAST CANCER METASTATIC
     Dosage: DATE OF LAST DOSE PRIOR TO SAE, 05 JUNE 2012
     Route: 042
     Dates: start: 20120228

REACTIONS (2)
  - Pulmonary embolism [Not Recovered/Not Resolved]
  - Aphasia [Recovered/Resolved]
